FAERS Safety Report 26116814 (Version 1)
Quarter: 2025Q4

REPORT INFORMATION
  Report Type: Spontaneous
  Country: GB (occurrence: GB)
  Receive Date: 20251203
  Receipt Date: 20251203
  Transmission Date: 20260118
  Serious: Yes (Other)
  Sender: MYLAN
  Company Number: GB-MYLANLABS-2025M1103372

PATIENT
  Age: 63 Year
  Sex: Female

DRUGS (24)
  1. ATORVASTATIN [Suspect]
     Active Substance: ATORVASTATIN
     Indication: Hypertriglyceridaemia
     Dosage: UNK
  2. ATORVASTATIN [Suspect]
     Active Substance: ATORVASTATIN
     Dosage: UNK
     Route: 065
  3. ATORVASTATIN [Suspect]
     Active Substance: ATORVASTATIN
     Dosage: UNK
     Route: 065
  4. ATORVASTATIN [Suspect]
     Active Substance: ATORVASTATIN
     Dosage: UNK
  5. EZETIMIBE [Suspect]
     Active Substance: EZETIMIBE
     Indication: Hypertriglyceridaemia
     Dosage: UNK
  6. EZETIMIBE [Suspect]
     Active Substance: EZETIMIBE
     Dosage: UNK
     Route: 065
  7. EZETIMIBE [Suspect]
     Active Substance: EZETIMIBE
     Dosage: UNK
     Route: 065
  8. EZETIMIBE [Suspect]
     Active Substance: EZETIMIBE
     Dosage: UNK
  9. GLICLAZIDE [Suspect]
     Active Substance: GLICLAZIDE
     Indication: Type 2 diabetes mellitus
     Dosage: UNK
  10. GLICLAZIDE [Suspect]
     Active Substance: GLICLAZIDE
     Dosage: UNK
     Route: 065
  11. GLICLAZIDE [Suspect]
     Active Substance: GLICLAZIDE
     Dosage: UNK
     Route: 065
  12. GLICLAZIDE [Suspect]
     Active Substance: GLICLAZIDE
     Dosage: UNK
  13. METFORMIN [Suspect]
     Active Substance: METFORMIN HYDROCHLORIDE
     Indication: Type 2 diabetes mellitus
     Dosage: UNK
  14. METFORMIN [Suspect]
     Active Substance: METFORMIN HYDROCHLORIDE
     Dosage: UNK
     Route: 065
  15. METFORMIN [Suspect]
     Active Substance: METFORMIN HYDROCHLORIDE
     Dosage: UNK
     Route: 065
  16. METFORMIN [Suspect]
     Active Substance: METFORMIN HYDROCHLORIDE
     Dosage: UNK
  17. INSULIN NOS [Suspect]
     Active Substance: INSULIN NOS
     Indication: Type 2 diabetes mellitus
     Dosage: UNK, FOR TYPE 2 DIABETES MELLITUS MANAGEMENT
  18. INSULIN NOS [Suspect]
     Active Substance: INSULIN NOS
     Dosage: UNK, FOR TYPE 2 DIABETES MELLITUS MANAGEMENT
     Route: 065
  19. INSULIN NOS [Suspect]
     Active Substance: INSULIN NOS
     Dosage: UNK, FOR TYPE 2 DIABETES MELLITUS MANAGEMENT
     Route: 065
  20. INSULIN NOS [Suspect]
     Active Substance: INSULIN NOS
     Dosage: UNK, FOR TYPE 2 DIABETES MELLITUS MANAGEMENT
  21. INSULIN NOS [Suspect]
     Active Substance: INSULIN NOS
     Indication: Type 2 diabetes mellitus
     Dosage: UNK, CONVENTIONAL THERAPY
  22. INSULIN NOS [Suspect]
     Active Substance: INSULIN NOS
     Dosage: UNK, CONVENTIONAL THERAPY
     Route: 042
  23. INSULIN NOS [Suspect]
     Active Substance: INSULIN NOS
     Dosage: UNK, CONVENTIONAL THERAPY
     Route: 042
  24. INSULIN NOS [Suspect]
     Active Substance: INSULIN NOS
     Dosage: UNK, CONVENTIONAL THERAPY

REACTIONS (1)
  - Drug ineffective [Unknown]
